FAERS Safety Report 10569675 (Version 2)
Quarter: 2014Q4

REPORT INFORMATION
  Report Type: Spontaneous
  Country: VN (occurrence: VN)
  Receive Date: 20141107
  Receipt Date: 20141109
  Transmission Date: 20150529
  Serious: Yes (Other)
  Sender: FDA-Public Use
  Company Number: VN-ROCHE-1486785

PATIENT
  Age: 60 Year
  Sex: Female
  Weight: 40 kg

DRUGS (3)
  1. XELODA [Suspect]
     Active Substance: CAPECITABINE
     Indication: RECTAL CANCER
     Route: 048
     Dates: start: 2013, end: 2014
  2. IRINOTECAN [Concomitant]
     Active Substance: IRINOTECAN
     Route: 065
     Dates: start: 2014
  3. OXALIPLATIN. [Suspect]
     Active Substance: OXALIPLATIN
     Indication: RECTAL CANCER
     Dosage: TOTAL 8 CYCLES ADMINISTERED
     Route: 065
     Dates: start: 2013, end: 2014

REACTIONS (3)
  - Hypoaesthesia [Recovered/Resolved]
  - Metastases to lung [Unknown]
  - Metastases to liver [Unknown]

NARRATIVE: CASE EVENT DATE: 2014
